FAERS Safety Report 24534723 (Version 1)
Quarter: 2024Q4

REPORT INFORMATION
  Report Type: Spontaneous
  Country: US (occurrence: US)
  Receive Date: 20241022
  Receipt Date: 20241022
  Transmission Date: 20250115
  Serious: No
  Sender: LUPIN
  Company Number: US-LUPIN PHARMACEUTICALS INC.-2024-10040

PATIENT

DRUGS (1)
  1. ALBUTEROL SULFATE [Suspect]
     Active Substance: ALBUTEROL SULFATE
     Indication: Respiratory disorder
     Dosage: UNK, PRN (1-2 PUFFS EVERY 6 HOURS AS NEEDED)
     Dates: start: 20240903

REACTIONS (2)
  - Off label use [Unknown]
  - Wrong technique in device usage process [Unknown]
